FAERS Safety Report 21990412 (Version 6)
Quarter: 2023Q2

REPORT INFORMATION
  Report Type: Spontaneous
  Country: US (occurrence: US)
  Receive Date: 20230214
  Receipt Date: 20230414
  Transmission Date: 20230721
  Serious: No
  Sender: FDA-Public Use
  Company Number: US-BIOGEN-2022BI01165337

PATIENT
  Age: 32 Year
  Sex: Female

DRUGS (2)
  1. TYSABRI [Suspect]
     Active Substance: NATALIZUMAB
     Indication: Multiple sclerosis
     Dosage: 1 PER 6-7 WEEKS
     Route: 050
     Dates: start: 20210806, end: 20220706
  2. TYSABRI [Suspect]
     Active Substance: NATALIZUMAB
     Route: 050
     Dates: start: 20230213

REACTIONS (4)
  - Prescribed underdose [Recovered/Resolved]
  - Multiple sclerosis [Unknown]
  - Frustration tolerance decreased [Unknown]
  - Post lumbar puncture syndrome [Unknown]

NARRATIVE: CASE EVENT DATE: 20210806
